FAERS Safety Report 19184198 (Version 1)
Quarter: 2021Q2

REPORT INFORMATION
  Report Type: Spontaneous
  Country: CA (occurrence: CA)
  Receive Date: 20210425
  Receipt Date: 20210425
  Transmission Date: 20210717
  Serious: Yes (Other)
  Sender: FDA-Public Use
  Company Number: None

PATIENT
  Age: 26 Year
  Sex: Female
  Weight: 54.43 kg

DRUGS (1)
  1. KYLEENA [Suspect]
     Active Substance: LEVONORGESTREL
     Dates: start: 20190112

REACTIONS (5)
  - Night sweats [None]
  - Fatigue [None]
  - Depression [None]
  - Temperature intolerance [None]
  - Anxiety [None]

NARRATIVE: CASE EVENT DATE: 20200301
